FAERS Safety Report 4889919-5 (Version None)
Quarter: 2006Q1

REPORT INFORMATION
  Report Type: 
  Country: None (occurrence: None)
  Receive Date: 20060120
  Receipt Date: 20060113
  Transmission Date: 20060701
  Serious: Yes (Death, Hospitalization)
  Sender: FDA-Public Use
  Company Number: NARC20060001

PATIENT
  Age: 62 Year
  Sex: Male

DRUGS (2)
  1. NARCAN [Suspect]
     Indication: REVERSAL OF SEDATION
     Dosage: 2 DOSES INJ
     Dates: start: 20060101, end: 20060101
  2. FENTANYL [Concomitant]
     Dosage: 3 DAYS OTHR
     Route: 050
     Dates: start: 20060101, end: 20060101

REACTIONS (3)
  - ABDOMINAL PAIN UPPER [None]
  - GASTROINTESTINAL INFECTION [None]
  - NAUSEA [None]
